FAERS Safety Report 10792293 (Version 1)
Quarter: 2015Q1

REPORT INFORMATION
  Report Type: Spontaneous
  Country: GB (occurrence: None)
  Receive Date: 20150211
  Receipt Date: 20150211
  Transmission Date: 20150721
  Serious: Yes (Hospitalization)
  Sender: FDA-Public Use
  Company Number: FK201500654

PATIENT
  Sex: Female

DRUGS (3)
  1. BAXTER SODIUM CHLORIDE INFUSION BP (BAXTER SODIUM CHLORIDE INFUSION BP) (BAXTER SODIUM CHLORIDE INFUSION BP) [Suspect]
     Active Substance: SODIUM CHLORIDE
     Indication: PRODUCT USED FOR UNKNOWN INDICATION
     Dosage: 40 ML, 5 IN 1 WK, SUBCUTANEOUS
     Route: 058
     Dates: start: 20150112
  2. WATER FOR INJECTION [Suspect]
     Active Substance: WATER
     Indication: PRODUCT USED FOR UNKNOWN INDICATION
     Dosage: INTRAVENOUS (NOT OTHERWISE SPECIFIED)?
     Route: 042
  3. DESFERRIOXAMINE (DEFEROXAMINE MESILATE) (DEFEROXAMINE MESILATE) [Suspect]
     Active Substance: DEFEROXAMINE MESYLATE
     Indication: PRODUCT USED FOR UNKNOWN INDICATION
     Dosage: 1.5 GM, 5 IN 1 WK, SUNCONJUNCTIVAL
     Route: 057
     Dates: start: 20150112

REACTIONS (1)
  - Blood potassium decreased [None]

NARRATIVE: CASE EVENT DATE: 20150108
